FAERS Safety Report 12434920 (Version 1)
Quarter: 2016Q2

REPORT INFORMATION
  Report Type: Spontaneous
  Country: US (occurrence: US)
  Receive Date: 20160603
  Receipt Date: 20160603
  Transmission Date: 20160815
  Serious: Yes (Hospitalization)
  Sender: FDA-Public Use
  Company Number: US-ROCHE-1734194

PATIENT
  Age: 59 Year
  Sex: Female

DRUGS (4)
  1. TOCILIZUMAB [Suspect]
     Active Substance: TOCILIZUMAB
     Indication: RHEUMATOID ARTHRITIS
     Route: 065
  2. VALPROATE [Concomitant]
     Active Substance: VALPROIC ACID
     Indication: BIPOLAR DISORDER
  3. IBUPROFEN. [Concomitant]
     Active Substance: IBUPROFEN
  4. RALOXIFENE. [Concomitant]
     Active Substance: RALOXIFENE
     Indication: BIPOLAR DISORDER

REACTIONS (3)
  - Extradural abscess [Recovered/Resolved]
  - Osteomyelitis [Recovered/Resolved]
  - Transaminases increased [Unknown]
